FAERS Safety Report 4453970-X (Version None)
Quarter: 2004Q3

REPORT INFORMATION
  Report Type: 
  Country: None (occurrence: None)
  Receive Date: 20040920
  Receipt Date: 20040907
  Transmission Date: 20050211
  Serious: Yes (Disabling)
  Sender: FDA-Public Use
  Company Number: GB-GLAXOSMITHKLINE-B0344704A

PATIENT
  Age: 67 Year
  Sex: Male
  Weight: 88 kg

DRUGS (6)
  1. AVODART [Suspect]
     Indication: HYPERTENSION
     Dosage: .5MG PER DAY
     Route: 048
     Dates: start: 20040715, end: 20040801
  2. ASPIRIN [Concomitant]
     Dosage: 75MG PER DAY
     Route: 065
  3. IPATROPIUM BROMIDE [Concomitant]
     Route: 055
  4. LOSARTAN POTASSIUM [Concomitant]
     Dosage: 50MG PER DAY
     Route: 065
  5. PARACETAMOL [Concomitant]
     Dosage: 500MG UNKNOWN
     Route: 048
  6. ALBUTEROL [Concomitant]
     Route: 055

REACTIONS (2)
  - BRONCHOSPASM [None]
  - URTICARIA [None]
